FAERS Safety Report 17318078 (Version 1)
Quarter: 2020Q1

REPORT INFORMATION
  Report Type: Spontaneous
  Country: US (occurrence: US)
  Receive Date: 20200124
  Receipt Date: 20200124
  Transmission Date: 20200409
  Serious: Yes (Hospitalization)
  Sender: FDA-Public Use
  Company Number: US-AKRON, INC.-2079397

PATIENT
  Sex: Male

DRUGS (1)
  1. COSOPT PF [Suspect]
     Active Substance: DORZOLAMIDE HYDROCHLORIDE\TIMOLOL MALEATE
     Route: 047

REACTIONS (7)
  - Nausea [None]
  - Diarrhoea [None]
  - Cardiac operation [None]
  - Heart rate decreased [None]
  - Vomiting [None]
  - Heart rate increased [None]
  - Abdominal pain upper [None]
